FAERS Safety Report 9059836 (Version 1)
Quarter: 2013Q1

REPORT INFORMATION
  Report Type: Spontaneous
  Country: IE (occurrence: IE)
  Receive Date: 20130212
  Receipt Date: 20130212
  Transmission Date: 20140127
  Serious: Yes (Disabling)
  Sender: FDA-Public Use
  Company Number: IE-AMGEN-IRLSP2012083312

PATIENT
  Age: 69 Year
  Sex: Female

DRUGS (6)
  1. ENBREL [Suspect]
     Indication: RHEUMATOID ARTHRITIS
     Dosage: 50 MG, WEEKLY
     Route: 058
     Dates: start: 201101, end: 201301
  2. METHOTREXATE [Concomitant]
     Dosage: UNK
  3. ELTROXIN [Concomitant]
     Dosage: UNK
  4. PRAVASTATIN [Concomitant]
     Dosage: UNK
  5. ALENDRONIC ACID [Concomitant]
     Dosage: UNK
  6. VALSARTAN [Concomitant]
     Dosage: 160 MG, UNK

REACTIONS (3)
  - Diplopia [Not Recovered/Not Resolved]
  - Colour blindness acquired [Not Recovered/Not Resolved]
  - Optic neuropathy [Not Recovered/Not Resolved]
